FAERS Safety Report 8809772 (Version 1)
Quarter: 2012Q4

REPORT INFORMATION
  Report Type: 
  Country: US (occurrence: US)
  Receive Date: 20120926
  Receipt Date: 20120926
  Transmission Date: 20130627
  Serious: Yes (Other)
  Sender: FDA-Public Use
  Company Number: CHPA2012US020247

PATIENT
  Age: 89 Year
  Sex: Male

DRUGS (1)
  1. BENEFIBER W/ WHEAT DEXTRIN [Suspect]
     Indication: CONSTIPATION
     Dosage: Unk, Unk
     Route: 048

REACTIONS (3)
  - Arterial occlusive disease [Recovered/Resolved]
  - Off label use [Unknown]
  - Flatulence [Unknown]
